FAERS Safety Report 14011066 (Version 2)
Quarter: 2017Q4

REPORT INFORMATION
  Report Type: Spontaneous
  Country: US (occurrence: US)
  Receive Date: 20170926
  Receipt Date: 20171123
  Transmission Date: 20180321
  Serious: No
  Sender: FDA-Public Use
  Company Number: US-009507513-1709USA012470

PATIENT

DRUGS (6)
  1. LEDIPASVIR (+) SOFOSBUVIR [Concomitant]
     Active Substance: LEDIPASVIR\SOFOSBUVIR
     Indication: ANTIVIRAL TREATMENT
     Dosage: SOFOSBUVIR 400 MG/LEDIPASVIR 90 MG, DAILY
  2. REBETOL [Suspect]
     Active Substance: RIBAVIRIN
     Indication: ANTIVIRAL TREATMENT
     Dosage: UNK (WEIGHT BASED), QD
     Route: 048
  3. REBETOL [Suspect]
     Active Substance: RIBAVIRIN
     Indication: HEPATITIS C
  4. MYCOPHENOLATE MOFETIL. [Concomitant]
     Active Substance: MYCOPHENOLATE MOFETIL
     Indication: IMMUNOSUPPRESSION
     Dosage: UNK
  5. LEDIPASVIR (+) SOFOSBUVIR [Concomitant]
     Active Substance: LEDIPASVIR\SOFOSBUVIR
     Indication: HEPATITIS C
  6. TACROLIMUS. [Concomitant]
     Active Substance: TACROLIMUS
     Indication: IMMUNOSUPPRESSION
     Dosage: 7-9 NG/ML DURING THE FIRST 6 MONTHS POSTTRANSPLANT AND 6-8 NG/ML FOR THE REMAINDER OF THE FIRST YEAR

REACTIONS (1)
  - Anaemia [Unknown]
